FAERS Safety Report 10183742 (Version 2)
Quarter: 2014Q2

REPORT INFORMATION
  Report Type: Spontaneous
  Country: US (occurrence: US)
  Receive Date: 20140520
  Receipt Date: 20140520
  Transmission Date: 20141212
  Serious: Yes (Death)
  Sender: FDA-Public Use
  Company Number: US-ASTELLAS-2014US004224

PATIENT
  Age: 62 Year
  Sex: Female

DRUGS (1)
  1. MYCAMINE [Suspect]
     Indication: SEPTIC SHOCK
     Dosage: UNK UNK, UNKNOWN FREQ.
     Route: 042
     Dates: start: 20131223, end: 20140226

REACTIONS (2)
  - Death [Fatal]
  - Off label use [Unknown]
